FAERS Safety Report 8434755-6 (Version None)
Quarter: 2012Q2

REPORT INFORMATION
  Report Type: 
  Country: None (occurrence: None)
  Receive Date: 20120323
  Receipt Date: 20110706
  Transmission Date: 20120825
  Serious: Yes (Hospitalization)
  Sender: FDA-Public Use
  Company Number: 163-21880-11070548

PATIENT
  Age: 56 Year
  Sex: Male
  Weight: 97.5234 kg

DRUGS (2)
  1. REVLIMID [Suspect]
     Indication: CHRONIC LYMPHOCYTIC LEUKAEMIA
     Dosage: 5 MG, 1 IN 1 D, PO  10 MG, 1 IN 1 D, PO
     Route: 048
     Dates: start: 20110501, end: 20110101
  2. REVLIMID [Suspect]
     Indication: CHRONIC LYMPHOCYTIC LEUKAEMIA
     Dosage: 5 MG, 1 IN 1 D, PO  10 MG, 1 IN 1 D, PO
     Route: 048
     Dates: start: 20110601, end: 20110706

REACTIONS (1)
  - ANGIOEDEMA [None]
